FAERS Safety Report 17734714 (Version 5)
Quarter: 2020Q2

REPORT INFORMATION
  Report Type: Report from Study
  Country: DK (occurrence: DK)
  Receive Date: 20200501
  Receipt Date: 20200611
  Transmission Date: 20200714
  Serious: Yes (Hospitalization)
  Sender: FDA-Public Use
  Company Number: DK-ROCHE-2592679

PATIENT
  Age: 85 Year
  Sex: Male

DRUGS (33)
  1. RITUXIMAB. [Suspect]
     Active Substance: RITUXIMAB
     Indication: CHRONIC LYMPHOCYTIC LEUKAEMIA
     Route: 041
     Dates: start: 20200424
  2. MOTILIUM [Concomitant]
     Active Substance: DOMPERIDONE
     Indication: NAUSEA
     Route: 065
     Dates: start: 20150713, end: 20150715
  3. BIOCLAVID [Concomitant]
     Active Substance: AMOXICILLIN\CLAVULANIC ACID
     Indication: PNEUMONIA
     Route: 065
     Dates: start: 20191128, end: 20191204
  4. TAZOCIN [Concomitant]
     Active Substance: PIPERACILLIN SODIUM\TAZOBACTAM SODIUM
     Route: 065
     Dates: start: 20200331
  5. PRIVIGEN [Concomitant]
     Active Substance: HUMAN IMMUNOGLOBULIN G
     Route: 065
     Dates: start: 20200328, end: 20200328
  6. FINASTERIDE. [Concomitant]
     Active Substance: FINASTERIDE
     Route: 065
     Dates: start: 20111221
  7. ACETYLCYSTEINE. [Concomitant]
     Active Substance: ACETYLCYSTEINE
     Route: 065
     Dates: start: 20150721, end: 20160811
  8. NEPAFENAC [Concomitant]
     Active Substance: NEPAFENAC
     Route: 065
     Dates: start: 20161208
  9. TAZOCIN [Concomitant]
     Active Substance: PIPERACILLIN SODIUM\TAZOBACTAM SODIUM
     Route: 065
     Dates: start: 20200327, end: 20200330
  10. KININ [QUININE HYDROCHLORIDE] [Concomitant]
     Route: 065
     Dates: start: 20150721, end: 20150811
  11. ZELITREX [Concomitant]
     Active Substance: VALACYCLOVIR HYDROCHLORIDE
     Indication: HERPES VIRUS INFECTION
     Route: 065
     Dates: start: 20160229, end: 20161122
  12. ELIQUIS [Concomitant]
     Active Substance: APIXABAN
     Route: 065
     Dates: start: 20200102
  13. CEFTAZIDIME. [Concomitant]
     Active Substance: CEFTAZIDIME
     Route: 065
     Dates: start: 20200309, end: 20200312
  14. PARACETAMOL [Concomitant]
     Active Substance: ACETAMINOPHEN
     Indication: INFUSION RELATED REACTION
     Route: 065
     Dates: start: 20150713, end: 20151201
  15. PARACETAMOL [Concomitant]
     Active Substance: ACETAMINOPHEN
     Route: 065
     Dates: start: 20200327
  16. TAVEGYL [Concomitant]
     Active Substance: CLEMASTINE FUMARATE
     Indication: INFUSION RELATED REACTION
     Route: 065
     Dates: start: 20150713, end: 20151201
  17. GLYCERYLNITRAT [Concomitant]
     Indication: AORTIC ARTERIOSCLEROSIS
     Route: 065
     Dates: start: 20141104
  18. METOPROLOL TARTRATE. [Concomitant]
     Active Substance: METOPROLOL TARTRATE
     Route: 065
     Dates: start: 20191224, end: 20191230
  19. FLUCONAZOLE. [Concomitant]
     Active Substance: FLUCONAZOLE
     Route: 065
     Dates: start: 20200118, end: 20200124
  20. SIMVASTATIN. [Concomitant]
     Active Substance: SIMVASTATIN
     Indication: HYPERCHOLESTEROLAEMIA
     Route: 065
     Dates: start: 20111221
  21. PARACETAMOL [Concomitant]
     Active Substance: ACETAMINOPHEN
     Indication: GASTROENTERITIS
     Route: 065
     Dates: start: 20200130, end: 20200131
  22. MAGNESIA [MAGNESIUM HYDROXIDE] [Concomitant]
     Active Substance: MAGNESIUM HYDROXIDE
     Indication: CONSTIPATION
     Route: 065
     Dates: start: 20150916
  23. ALLOPURINOL. [Concomitant]
     Active Substance: ALLOPURINOL
     Route: 065
     Dates: start: 20190702, end: 20190711
  24. TAZOCIN [Concomitant]
     Active Substance: PIPERACILLIN SODIUM\TAZOBACTAM SODIUM
     Indication: GASTROENTERITIS
     Route: 065
     Dates: start: 20200130, end: 20200208
  25. MABLET [Concomitant]
     Route: 065
     Dates: start: 20200117
  26. CEFTAZIDIME. [Concomitant]
     Active Substance: CEFTAZIDIME
     Route: 065
     Dates: start: 20200327, end: 20200330
  27. ACETYLSALICYLIC ACID [Concomitant]
     Active Substance: ASPIRIN
     Dosage: INDICATION: ANTI-THROMBTIC PROPHYLAXIS
     Route: 065
     Dates: start: 20111221
  28. TAZOCIN [Concomitant]
     Active Substance: PIPERACILLIN SODIUM\TAZOBACTAM SODIUM
     Indication: PNEUMONIA
     Route: 065
     Dates: start: 20191222, end: 20191225
  29. KALIUMKLORID [Concomitant]
     Indication: HYPOKALAEMIA
     Route: 065
  30. VENETOCLAX. [Suspect]
     Active Substance: VENETOCLAX
     Indication: CHRONIC LYMPHOCYTIC LEUKAEMIA
     Route: 048
     Dates: start: 20200424
  31. BENDAMUSTINE [Suspect]
     Active Substance: BENDAMUSTINE
     Indication: CHRONIC LYMPHOCYTIC LEUKAEMIA
     Dosage: 70 MG/M2
     Route: 042
     Dates: start: 20150713, end: 20151201
  32. ALLOPURINOL. [Concomitant]
     Active Substance: ALLOPURINOL
     Indication: GOUT
     Route: 065
     Dates: start: 20150511, end: 20150909
  33. TICAGRELOR. [Concomitant]
     Active Substance: TICAGRELOR
     Route: 065
     Dates: start: 20161230

REACTIONS (1)
  - SARS-CoV-2 test positive [Not Recovered/Not Resolved]

NARRATIVE: CASE EVENT DATE: 20200424
